FAERS Safety Report 4549910-5 (Version None)
Quarter: 2004Q4

REPORT INFORMATION
  Report Type: 
  Country: None (occurrence: None)
  Receive Date: 20041230
  Receipt Date: 20040506
  Transmission Date: 20050328
  Serious: Yes (Hospitalization)
  Sender: FDA-Public Use
  Company Number: 04-05-0645

PATIENT
  Age: 60 Year
  Sex: Male

DRUGS (2)
  1. CLOZAPINE [Suspect]
     Indication: BIPOLAR DISORDER
     Dosage: 100-400MG  QD ORAL
     Route: 048
     Dates: start: 20010101
  2. CLOZAPINE [Suspect]
     Indication: MANIA
     Dosage: 100-400MG  QD ORAL
     Route: 048
     Dates: start: 20010101

REACTIONS (1)
  - PSYCHOTIC DISORDER [None]
